FAERS Safety Report 9295489 (Version 1)
Quarter: 2013Q2

REPORT INFORMATION
  Report Type: Spontaneous
  Country: US (occurrence: US)
  Receive Date: 20130517
  Receipt Date: 20130517
  Transmission Date: 20140414
  Serious: Yes (Death)
  Sender: FDA-Public Use
  Company Number: US-ASTELLAS-2013US005040

PATIENT
  Age: 42 Year
  Sex: Male

DRUGS (1)
  1. PROGRAF [Suspect]
     Indication: RENAL TRANSPLANT
     Dosage: 12 MG, BID
     Route: 048
     Dates: start: 20081104, end: 20130429

REACTIONS (1)
  - Complications of transplanted kidney [Fatal]
